FAERS Safety Report 8571062-5 (Version None)
Quarter: 2012Q3

REPORT INFORMATION
  Report Type: 
  Country: None (occurrence: None)
  Receive Date: 20120730
  Receipt Date: 20120730
  Transmission Date: 20120928
  Serious: Yes (Other)
  Sender: FDA-Public Use
  Company Number: None

PATIENT
  Age: 64 Year
  Sex: Female
  Weight: 91 kg

DRUGS (8)
  1. MULTI-VITAMIN [Concomitant]
  2. CYMBALTA [Concomitant]
  3. SULFASALAZINE [Concomitant]
  4. NEUTROGENA NATURALS MULTIVITAMIN NOURISHING NIGH [Suspect]
     Indication: DRY SKIN PROPHYLAXIS
     Dosage: 4 FINGERTIPS, 1X, TOPICAL
     Route: 061
     Dates: start: 20120712, end: 20120712
  5. MAGNESIUM [Concomitant]
  6. SIMVASTATIN [Concomitant]
  7. ASCORBIC ACID [Concomitant]
  8. LISINOPRIL [Concomitant]

REACTIONS (5)
  - APPLICATION SITE URTICARIA [None]
  - THROAT TIGHTNESS [None]
  - APPLICATION SITE PRURITUS [None]
  - EYE SWELLING [None]
  - FATIGUE [None]
